FAERS Safety Report 15221750 (Version 1)
Quarter: 2018Q3

REPORT INFORMATION
  Report Type: Spontaneous
  Country: US (occurrence: US)
  Receive Date: 20180731
  Receipt Date: 20180731
  Transmission Date: 20181010
  Serious: Yes (Other)
  Sender: FDA-Public Use
  Company Number: US-GUERBET-US-20180191

PATIENT
  Age: 65 Year
  Sex: Female
  Weight: 74.3 kg

DRUGS (1)
  1. DOTAREM [Suspect]
     Active Substance: GADOTERATE MEGLUMINE
     Indication: NUCLEAR MAGNETIC RESONANCE IMAGING
     Route: 042
     Dates: start: 20180628, end: 20180628

REACTIONS (11)
  - Dyspnoea [Recovered/Resolved]
  - Product use in unapproved indication [Recovered/Resolved]
  - Anaphylactic reaction [Recovered/Resolved]
  - Eyelid oedema [Recovered/Resolved]
  - Erythema [Recovered/Resolved]
  - Eye swelling [Recovered/Resolved]
  - Chest discomfort [Recovered/Resolved]
  - Pharyngeal oedema [Recovered/Resolved]
  - Unresponsive to stimuli [Recovered/Resolved]
  - Feeling abnormal [Recovered/Resolved]
  - Peripheral swelling [Recovered/Resolved]

NARRATIVE: CASE EVENT DATE: 20180628
